FAERS Safety Report 5314616-1 (Version None)
Quarter: 2007Q2

REPORT INFORMATION
  Report Type: 
  Country: None (occurrence: None)
  Receive Date: 20070502
  Receipt Date: 20070430
  Transmission Date: 20071010
  Serious: Yes (Other)
  Sender: FDA-Public Use
  Company Number: CHWYE552630APR07

PATIENT
  Age: 63 Year
  Sex: Female

DRUGS (1)
  1. PREMARIN [Suspect]
     Dosage: UNKNOWN
     Dates: end: 20060101

REACTIONS (3)
  - COLOUR VISION TESTS ABNORMAL [None]
  - MACULOPATHY [None]
  - RETINAL DISORDER [None]
